FAERS Safety Report 19472677 (Version 1)
Quarter: 2021Q2

REPORT INFORMATION
  Report Type: Spontaneous
  Country: US (occurrence: US)
  Receive Date: 20210629
  Receipt Date: 20210629
  Transmission Date: 20210717
  Serious: No
  Sender: FDA-Public Use
  Company Number: US-PFIZER INC-2021593170

PATIENT
  Age: 52 Year
  Sex: Female

DRUGS (2)
  1. IBRANCE [Suspect]
     Active Substance: PALBOCICLIB
     Dosage: 100 MG, CYCLIC (IBRANCE 100MG QD (ONCE A DAY)X21D Q28D)
     Dates: start: 20210212
  2. IBRANCE [Suspect]
     Active Substance: PALBOCICLIB
     Indication: BREAST CANCER FEMALE
     Dosage: 100 MG
     Dates: start: 20210211

REACTIONS (6)
  - Neoplasm progression [Unknown]
  - Dry skin [Unknown]
  - Fatigue [Unknown]
  - Anaemia [Unknown]
  - Dyspnoea [Unknown]
  - Nausea [Unknown]
